FAERS Safety Report 4654170-0 (Version None)
Quarter: 2005Q2

REPORT INFORMATION
  Report Type: 
  Country: None (occurrence: None)
  Receive Date: 20050505
  Receipt Date: 20050216
  Transmission Date: 20051028
  Serious: Yes (Death, Hospitalization)
  Sender: FDA-Public Use
  Company Number: US-MERCK-0502USA02339

PATIENT
  Age: 74 Year
  Sex: Male

DRUGS (1)
  1. VIOXX [Suspect]
     Route: 048
     Dates: start: 20000814, end: 20010301

REACTIONS (3)
  - CARDIAC FAILURE CONGESTIVE [None]
  - CARDIOPULMONARY FAILURE [None]
  - CORONARY ARTERY DISEASE [None]
